FAERS Safety Report 22210463 (Version 1)
Quarter: 2023Q2

REPORT INFORMATION
  Report Type: Spontaneous
  Country: US (occurrence: US)
  Receive Date: 20230414
  Receipt Date: 20230414
  Transmission Date: 20230721
  Serious: Yes (Other)
  Sender: FDA-Public Use
  Company Number: US-002147023-NVSC2023US084574

PATIENT
  Age: 70 Year
  Sex: Female

DRUGS (2)
  1. AMOXICILLIN\CLAVULANATE POTASSIUM [Suspect]
     Active Substance: AMOXICILLIN\CLAVULANATE POTASSIUM
     Indication: Product used for unknown indication
     Dosage: 875/125 MG, BID
     Route: 065
     Dates: start: 20230307
  2. TYLENOL [Concomitant]
     Active Substance: ACETAMINOPHEN
     Indication: Product used for unknown indication
     Dosage: 1000 MG, 2-3X DAY
     Route: 065

REACTIONS (10)
  - Choking [Not Recovered/Not Resolved]
  - Dysphagia [Not Recovered/Not Resolved]
  - Sedation [Not Recovered/Not Resolved]
  - Brain fog [Not Recovered/Not Resolved]
  - Retching [Not Recovered/Not Resolved]
  - Fatigue [Not Recovered/Not Resolved]
  - Product size issue [Not Recovered/Not Resolved]
  - Incorrect dose administered [Not Recovered/Not Resolved]
  - Product dose omission issue [Not Recovered/Not Resolved]
  - Wrong technique in product usage process [Not Recovered/Not Resolved]

NARRATIVE: CASE EVENT DATE: 20230307
